FAERS Safety Report 9985453 (Version 3)
Quarter: 2014Q1

REPORT INFORMATION
  Report Type: Spontaneous
  Country: US (occurrence: US)
  Receive Date: 20140307
  Receipt Date: 20140324
  Transmission Date: 20141002
  Serious: Yes (Hospitalization, Other)
  Sender: FDA-Public Use
  Company Number: US-TEVA-459695USA

PATIENT
  Age: 51 Year
  Sex: Male

DRUGS (1)
  1. CLOZAPINE [Suspect]

REACTIONS (10)
  - Cerebrovascular accident [Unknown]
  - Aphasia [Unknown]
  - Dysarthria [Unknown]
  - Posture abnormal [Unknown]
  - Headache [Unknown]
  - Asthenia [Unknown]
  - Heart rate decreased [Unknown]
  - Dizziness [Unknown]
  - Dyskinesia [Unknown]
  - Muscle twitching [Unknown]
